FAERS Safety Report 8761615 (Version 3)
Quarter: 2013Q1

REPORT INFORMATION
  Report Type: Spontaneous
  Country: US (occurrence: None)
  Receive Date: 20120821
  Receipt Date: 20121016
  Transmission Date: 20140127
  Serious: Yes (Hospitalization)
  Sender: FDA-Public Use
  Company Number: JPI-P-024127

PATIENT
  Age: 52 Year
  Sex: Female
  Weight: 77.11 kg

DRUGS (7)
  1. XYREM [Suspect]
     Indication: CATAPLEXY
     Route: 048
     Dates: start: 200906
  2. GABAPENTIN [Suspect]
     Indication: NEURALGIA
  3. DULOXETINE HYDROCHLORIDE [Concomitant]
  4. MONTELUKAST SODIUM [Concomitant]
  5. FEXOFENADINE HYDROCHLORIDE [Concomitant]
  6. BENZODIAZEPINES [Suspect]
     Indication: PRODUCT USED FOR UNKNOWN INDICATION
  7. PAIN MEDICATION [Suspect]
     Indication: PRODUCT USED FOR UNKNOWN INDICATION

REACTIONS (12)
  - Escherichia sepsis [None]
  - Drug withdrawal convulsions [None]
  - Asthenia [None]
  - Poor quality sleep [None]
  - Migraine [None]
  - Nasopharyngitis [None]
  - Foot fracture [None]
  - Osteoporosis [None]
  - Ligament sprain [None]
  - Weight decreased [None]
  - Fall [None]
  - Inappropriate schedule of drug administration [None]
